FAERS Safety Report 14160920 (Version 1)
Quarter: 2017Q4

REPORT INFORMATION
  Report Type: Other
  Country: CA (occurrence: CA)
  Receive Date: 20171106
  Receipt Date: 20171106
  Transmission Date: 20180321
  Serious: Yes (Hospitalization, Other)
  Sender: FDA-Public Use
  Company Number: CA-APOTEX-2017AP020611

PATIENT
  Sex: Female
  Weight: 6 kg

DRUGS (1)
  1. APO-SOTALOL [Suspect]
     Active Substance: SOTALOL HYDROCHLORIDE
     Indication: HAEMANGIOMA
     Dosage: UNK
     Route: 048

REACTIONS (1)
  - Hypoglycaemia [Recovered/Resolved]
